FAERS Safety Report 7305009-6 (Version None)
Quarter: 2011Q1

REPORT INFORMATION
  Report Type: 
  Country: None (occurrence: None)
  Receive Date: 20110222
  Receipt Date: 20110217
  Transmission Date: 20110831
  Serious: Yes (Hospitalization)
  Sender: FDA-Public Use
  Company Number: IE-PFIZER INC-2011037355

PATIENT
  Age: 30 Year
  Sex: Female

DRUGS (5)
  1. VITAMIN K TAB [Concomitant]
     Dosage: 10 MG, UNK
     Route: 048
     Dates: start: 20101101
  2. PREDNISOLONE [Concomitant]
     Indication: AUTOIMMUNE HEPATITIS
     Dosage: 55 MG, UNK
     Route: 048
     Dates: start: 20101101
  3. CALCICHEW-D3 [Concomitant]
     Dosage: UNK
     Route: 048
     Dates: start: 20101101
  4. ALDACTONE [Suspect]
     Indication: AUTOIMMUNE HEPATITIS
     Dosage: 25 MG, UNK
     Route: 048
     Dates: start: 20101102, end: 20101207
  5. PANTOPRAZOLE [Concomitant]
     Indication: PROPHYLAXIS
     Dosage: 40 MG, UNK
     Route: 048
     Dates: start: 20101101

REACTIONS (2)
  - NEUTROPENIA [None]
  - WHITE BLOOD CELL COUNT DECREASED [None]
